FAERS Safety Report 16242509 (Version 1)
Quarter: 2019Q2

REPORT INFORMATION
  Report Type: Spontaneous
  Country: US (occurrence: US)
  Receive Date: 20190426
  Receipt Date: 20190426
  Transmission Date: 20190711
  Serious: No
  Sender: FDA-Public Use
  Company Number: US-TEVA-2019-US-1034444

PATIENT
  Age: 37 Year
  Sex: Female

DRUGS (1)
  1. COPAXONE [Suspect]
     Active Substance: GLATIRAMER ACETATE
     Route: 065
     Dates: start: 2015

REACTIONS (8)
  - Therapy change [Unknown]
  - Vomiting [Unknown]
  - Pain [Unknown]
  - Dyspepsia [Unknown]
  - Injection site hypertrophy [Unknown]
  - Palpitations [Unknown]
  - Dyspnoea [Unknown]
  - Diarrhoea [Unknown]
